FAERS Safety Report 19799328 (Version 1)
Quarter: 2021Q3

REPORT INFORMATION
  Report Type: Spontaneous
  Country: SE (occurrence: SE)
  Receive Date: 20210907
  Receipt Date: 20210907
  Transmission Date: 20211014
  Serious: Yes (Other)
  Sender: FDA-Public Use
  Company Number: SE-GLENMARK PHARMACEUTICALS-2021GMK054724

PATIENT

DRUGS (1)
  1. DESLORATADINE GLENMARK 5MG TABLETTER [Suspect]
     Active Substance: DESLORATADINE
     Indication: HYPERSENSITIVITY
     Dosage: 1 DOSAGE FORM, OD (USED A COUPLE OF DAYS, 1X1)
     Route: 065

REACTIONS (4)
  - Foreign body in throat [Unknown]
  - Throat irritation [Unknown]
  - Product use complaint [Unknown]
  - Discomfort [Unknown]
